FAERS Safety Report 26016536 (Version 2)
Quarter: 2025Q4

REPORT INFORMATION
  Report Type: Spontaneous
  Country: AU (occurrence: AU)
  Receive Date: 20251110
  Receipt Date: 20251215
  Transmission Date: 20260117
  Serious: Yes (Hospitalization)
  Sender: BEIGENE
  Company Number: AU-BEIGENE-BGN-2025-019116

PATIENT
  Age: 67 Year

DRUGS (2)
  1. BRUKINSA [Suspect]
     Active Substance: ZANUBRUTINIB
     Indication: Marginal zone lymphoma recurrent
     Dosage: UNK
     Route: 061
  2. BRUKINSA [Suspect]
     Active Substance: ZANUBRUTINIB
     Dosage: 160 MILLIGRAM, BID
     Route: 061

REACTIONS (2)
  - Pulmonary mass [Recovered/Resolved]
  - Pneumonitis [Recovered/Resolved]
